FAERS Safety Report 12295168 (Version 1)
Quarter: 2016Q2

REPORT INFORMATION
  Report Type: Spontaneous
  Country: US (occurrence: US)
  Receive Date: 20160422
  Receipt Date: 20160422
  Transmission Date: 20160815
  Serious: No
  Sender: FDA-Public Use
  Company Number: US-PERRIGO-15US013399

PATIENT
  Age: 27 Year
  Weight: 87.75 kg

DRUGS (1)
  1. PSEUDOEPHEDRINE HYDROCHLORIDE. [Suspect]
     Active Substance: PSEUDOEPHEDRINE HYDROCHLORIDE
     Indication: RHINORRHOEA
     Dosage: 120 MG, EVERY 12 HOURS
     Route: 048
     Dates: start: 20151215, end: 20151218

REACTIONS (2)
  - Epistaxis [Unknown]
  - Drug ineffective for unapproved indication [Unknown]

NARRATIVE: CASE EVENT DATE: 20151215
